FAERS Safety Report 4853095-5 (Version None)
Quarter: 2005Q4

REPORT INFORMATION
  Report Type: 
  Country: None (occurrence: None)
  Receive Date: 20051212
  Receipt Date: 20051128
  Transmission Date: 20060501
  Serious: Yes (Hospitalization)
  Sender: FDA-Public Use
  Company Number: HQWYE735529NOV05

PATIENT
  Age: 74 Year
  Sex: Male

DRUGS (6)
  1. INDERAL [Suspect]
     Indication: ARRHYTHMIA
     Dosage: 200 MG 1X PER 1 DAY, ORAL
     Route: 048
     Dates: end: 20050523
  2. AMLODIPINE BESYLATE [Suspect]
     Indication: ESSENTIAL HYPERTENSION
     Dosage: 10 MG 1X PER 1 DAY, ORAL
     Route: 048
     Dates: end: 20050520
  3. COTAREG (HYDROCHLOROTHIAZIDE/VALSARTAN,) [Suspect]
     Indication: ESSENTIAL HYPERTENSION
     Dosage: 1 UNIT 1X PER 1 DAY, ORAL
     Route: 048
     Dates: end: 20050520
  4. HYPERIUM (RILMENIDINE,) [Suspect]
     Dosage: 1 MG 1X PER 1 DAY, ORAL
     Route: 048
     Dates: end: 20050520
  5. MIXTARD HUMAN 70/30 [Suspect]
     Indication: DIABETES MELLITUS INSULIN-DEPENDENT
     Dosage: SC
     Route: 058
     Dates: end: 20050521
  6. PREVISCAN (FLUINDIONE) [Suspect]
     Dosage: CYCLIC - 20 MG ONE DAY/15 MG THE OTHER DAY, ORAL
     Route: 048
     Dates: end: 20050522

REACTIONS (3)
  - HYPOGLYCAEMIA [None]
  - PULMONARY FIBROSIS [None]
  - RENAL FAILURE [None]
